FAERS Safety Report 7742849-3 (Version None)
Quarter: 2011Q3

REPORT INFORMATION
  Report Type: 
  Country: None (occurrence: None)
  Receive Date: 20110908
  Receipt Date: 20110908
  Transmission Date: 20111222
  Serious: Yes (Other)
  Sender: FDA-Public Use
  Company Number: None

PATIENT
  Age: 58 Year
  Sex: Female

DRUGS (1)
  1. BUDESONIDE [Suspect]
     Indication: CROHN'S DISEASE
     Dosage: 90 3 TAB PO QD
     Route: 048
     Dates: start: 20100816

REACTIONS (3)
  - PRODUCT SUBSTITUTION ISSUE [None]
  - COELIAC DISEASE [None]
  - DRUG HYPERSENSITIVITY [None]
